FAERS Safety Report 21935173 (Version 2)
Quarter: 2023Q1

REPORT INFORMATION
  Report Type: Other
  Country: US (occurrence: US)
  Receive Date: 20230201
  Receipt Date: 20230210
  Transmission Date: 20230418
  Serious: Yes (Other)
  Sender: FDA-Public Use
  Company Number: US-MACLEODS PHARMA UK LTD-MAC2023039545

PATIENT

DRUGS (6)
  1. EMTRICITABINE\TENOFOVIR [Suspect]
     Active Substance: EMTRICITABINE\TENOFOVIR
     Indication: Product used for unknown indication
     Dosage: 1 DOSAGE FORM, QD  (ONE COURSE, NOT PRIOR TO CONCEPTION AND EXPOSURE AT FIRST TRIMESTER) (1 TAB/CAP)
     Route: 064
     Dates: start: 20220527
  2. BIKTARVY [Suspect]
     Active Substance: BICTEGRAVIR SODIUM\EMTRICITABINE\TENOFOVIR ALAFENAMIDE FUMARATE
     Indication: Product used for unknown indication
     Dosage: 1 DOSAGE FORM, QD ONE COURSE, NOT PRIOR TO CONCEPTION AND EXPOSURE AT FIRST TRIMESTER) (1 TAB/CAP) (
     Route: 064
  3. TIVICAY [Suspect]
     Active Substance: DOLUTEGRAVIR SODIUM
     Indication: Product used for unknown indication
     Dosage: 1 DOSAGE FORM, QD ONE COURSE, NOT PRIOR TO CONCEPTION AND EXPOSURE AT FIRST TRIMESTER) (1 TAB/CAP)
     Route: 064
     Dates: start: 20220527
  4. GABAPENTIN [Suspect]
     Active Substance: GABAPENTIN
     Indication: Product used for unknown indication
     Dosage: UNK (START DATE SEP 2021)
     Route: 065
  5. INSULIN NOS [Suspect]
     Active Substance: INSULIN NOS
     Indication: Product used for unknown indication
     Dosage: UNK (EXPOSURE DURING THIRD TRIMESTER)
     Route: 065
  6. CANNABIS SATIVA SUBSP. INDICA TOP [Suspect]
     Active Substance: CANNABIS SATIVA SUBSP. INDICA TOP
     Indication: Product used for unknown indication
     Dosage: UNK (OCCASIONAL)
     Route: 065

REACTIONS (2)
  - Haemangioma [Unknown]
  - Foetal exposure during pregnancy [Unknown]
